FAERS Safety Report 9736379 (Version 2)
Quarter: 2013Q4

REPORT INFORMATION
  Report Type: Spontaneous
  Country: IT (occurrence: IT)
  Receive Date: 20131206
  Receipt Date: 20131227
  Transmission Date: 20140711
  Serious: Yes (Hospitalization)
  Sender: FDA-Public Use
  Company Number: PHHY2013IT139444

PATIENT
  Age: 50 Year
  Sex: Male

DRUGS (5)
  1. ALPRAZOLAM [Suspect]
     Indication: SUICIDE ATTEMPT
     Dosage: 14 DF, UNK
     Route: 048
     Dates: start: 20130823, end: 20130823
  2. EUTIMIL [Concomitant]
     Route: 048
  3. COVERSYL [Concomitant]
     Dosage: 1 DF, UNK
     Route: 048
  4. DILATREND [Concomitant]
     Dosage: 2 DF, UNK
     Route: 048
  5. OLANZAPINE [Concomitant]

REACTIONS (3)
  - Presyncope [Unknown]
  - Fall [Unknown]
  - Suicide attempt [Unknown]
